FAERS Safety Report 17180646 (Version 2)
Quarter: 2020Q3

REPORT INFORMATION
  Report Type: Report from Study
  Country: MY (occurrence: MY)
  Receive Date: 20191220
  Receipt Date: 20200225
  Transmission Date: 20201105
  Serious: Yes (Hospitalization)
  Sender: FDA-Public Use
  Company Number: MY-ALEXION PHARMACEUTICALS INC.-A201910824

PATIENT
  Age: 39 Year
  Sex: Male
  Weight: 66 kg

DRUGS (22)
  1. RAVULIZUMAB. [Suspect]
     Active Substance: RAVULIZUMAB
     Indication: PAROXYSMAL NOCTURNAL HAEMOGLOBINURIA
     Dosage: 2700 MG, UNK
     Route: 042
     Dates: start: 20170502
  2. RAVULIZUMAB. [Suspect]
     Active Substance: RAVULIZUMAB
     Dosage: 3300 MG, UNK
     Route: 042
     Dates: start: 20191029
  3. CEFOPERAZONE [Concomitant]
     Active Substance: CEFOPERAZONE
     Indication: CHOLECYSTITIS ACUTE
     Dosage: 1 G, BID
     Route: 042
     Dates: start: 20190615, end: 20190619
  4. METRONIDAZOLE. [Concomitant]
     Active Substance: METRONIDAZOLE
     Indication: CHOLECYSTITIS ACUTE
     Dosage: 500 MG, TID
     Route: 042
     Dates: start: 20190615, end: 20190619
  5. METRONIDAZOLE. [Concomitant]
     Active Substance: METRONIDAZOLE
     Dosage: 400 MG, TID
     Route: 048
     Dates: start: 20190619, end: 20190621
  6. BENADRYL [Concomitant]
     Active Substance: DIPHENHYDRAMINE HYDROCHLORIDE
     Indication: UPPER RESPIRATORY TRACT INFECTION
     Dosage: 15 ML, TID
     Route: 048
     Dates: start: 20190802, end: 20190808
  7. DIPOTASSIUM HYDROGEN PHOSPHATE [Concomitant]
     Dosage: 1 AMPULE DOSING UNIT, QD
     Route: 042
     Dates: start: 20190803, end: 20190804
  8. NORMAL SALINE [Concomitant]
     Active Substance: SODIUM CHLORIDE
     Indication: CHOLECYSTITIS ACUTE
     Dosage: 1000 ML, QD
     Route: 042
     Dates: start: 20190615, end: 20190618
  9. PENICILLIN                         /00000901/ [Concomitant]
     Active Substance: PENICILLIN G
     Indication: INFECTION PROPHYLAXIS
     Dosage: 250 MG, BID
     Route: 048
     Dates: start: 20171017
  10. SLOW K [Concomitant]
     Active Substance: POTASSIUM CHLORIDE
     Dosage: 1200 MG, TID
     Route: 048
     Dates: start: 20190717, end: 20190722
  11. PANTOPRAZOLE [Concomitant]
     Active Substance: PANTOPRAZOLE
     Indication: CHOLECYSTITIS ACUTE
     Dosage: 40 MG, QD
     Route: 042
     Dates: start: 20190615, end: 20190618
  12. METOCLOPRAMIDE. [Concomitant]
     Active Substance: METOCLOPRAMIDE
     Indication: CHOLECYSTITIS ACUTE
     Dosage: 10 MG, SINGLE
     Route: 042
     Dates: start: 20190615, end: 20190615
  13. RAVULIZUMAB. [Suspect]
     Active Substance: RAVULIZUMAB
     Dosage: 3300 MG, UNK
     Route: 042
     Dates: start: 20190514
  14. SLOW K [Concomitant]
     Active Substance: POTASSIUM CHLORIDE
     Indication: HYPOKALAEMIA
     Dosage: 600 MG, QD
     Route: 048
     Dates: start: 20170907, end: 20190716
  15. SLOW K [Concomitant]
     Active Substance: POTASSIUM CHLORIDE
     Dosage: 15 ML, TID
     Route: 048
     Dates: start: 20190729, end: 20190801
  16. SLOW K [Concomitant]
     Active Substance: POTASSIUM CHLORIDE
     Dosage: 1200 MG, TID
     Route: 048
     Dates: start: 20190801, end: 20190808
  17. SLOW K [Concomitant]
     Active Substance: POTASSIUM CHLORIDE
     Dosage: 1.5 G, TID
     Route: 048
     Dates: start: 20190716, end: 20190719
  18. TRAMADOL. [Concomitant]
     Active Substance: TRAMADOL
     Indication: CHOLECYSTITIS ACUTE
     Dosage: 50 MG, SINGLE
     Route: 042
     Dates: start: 20190615, end: 20190615
  19. RAVULIZUMAB. [Suspect]
     Active Substance: RAVULIZUMAB
     Dosage: 3300 MG, UNK
     Route: 042
     Dates: start: 20190714
  20. SLOW K [Concomitant]
     Active Substance: POTASSIUM CHLORIDE
     Dosage: 600 MG, QD
     Route: 048
     Dates: start: 20190804
  21. BENADRYL [Concomitant]
     Active Substance: DIPHENHYDRAMINE HYDROCHLORIDE
     Indication: COUGH
     Dosage: 15 ML, PRN
     Route: 048
  22. DIPOTASSIUM HYDROGEN PHOSPHATE [Concomitant]
     Indication: HYPOPHOSPHATAEMIA
     Dosage: 1 AMPULE DOSING UNIT, QD
     Route: 042
     Dates: start: 20190731, end: 20190801

REACTIONS (1)
  - Jaundice [Recovered/Resolved]

NARRATIVE: CASE EVENT DATE: 20190711
